FAERS Safety Report 9303373 (Version 2)
Quarter: 2013Q2

REPORT INFORMATION
  Report Type: Spontaneous
  Country: US (occurrence: None)
  Receive Date: 20130517
  Receipt Date: 20130627
  Transmission Date: 20140414
  Serious: Yes (Death)
  Sender: FDA-Public Use
  Company Number: 2013CT000034

PATIENT
  Age: 82 Year
  Sex: Female

DRUGS (11)
  1. KORLYM [Suspect]
     Indication: CUSHING^S SYNDROME
     Route: 048
     Dates: start: 20130307
  2. AMLODIPINE [Concomitant]
  3. ATORVASTATIN [Concomitant]
  4. CABERGOLINE [Concomitant]
  5. KETOCONAZOLE [Concomitant]
  6. LISINOPRIL [Concomitant]
  7. MECLIZINE [Concomitant]
  8. POTASSIUM CHLORIDE [Concomitant]
  9. SPIRONOLACTONE [Concomitant]
  10. TRAMADOL [Concomitant]
  11. ZOLPIDEM [Concomitant]

REACTIONS (3)
  - Disease complication [None]
  - Pituitary-dependent Cushing^s syndrome [None]
  - Hypothalamo-pituitary disorder [None]
